FAERS Safety Report 14526263 (Version 1)
Quarter: 2018Q1

REPORT INFORMATION
  Report Type: Spontaneous
  Country: FR (occurrence: FR)
  Receive Date: 20180213
  Receipt Date: 20180213
  Transmission Date: 20180509
  Serious: Yes (Other)
  Sender: FDA-Public Use
  Company Number: FR-AUROBINDO-AUR-APL-2018-006782

PATIENT

DRUGS (1)
  1. SIMVASTATIN. [Suspect]
     Active Substance: SIMVASTATIN
     Indication: PRODUCT USED FOR UNKNOWN INDICATION
     Dosage: UNK ()
     Route: 065

REACTIONS (17)
  - Chest discomfort [Unknown]
  - Amnesia [Unknown]
  - Fatigue [Unknown]
  - Musculoskeletal disorder [Unknown]
  - Sleep disorder [Unknown]
  - Impaired quality of life [Unknown]
  - Dry mouth [Unknown]
  - Tendon disorder [Unknown]
  - Arthropathy [Unknown]
  - Muscle spasms [Unknown]
  - Paraesthesia [Unknown]
  - Cough [Unknown]
  - Myalgia [Unknown]
  - Dyspepsia [Unknown]
  - Skin reaction [Unknown]
  - Adverse event [Unknown]
  - Dyspnoea [Unknown]
